FAERS Safety Report 13696376 (Version 1)
Quarter: 2017Q2

REPORT INFORMATION
  Report Type: Other
  Country: CA (occurrence: CA)
  Receive Date: 20170628
  Receipt Date: 20170628
  Transmission Date: 20170830
  Serious: Yes (Other)
  Sender: FDA-Public Use
  Company Number: CA-APOTEX-2017AP013269

PATIENT
  Age: 45 Year
  Sex: Male

DRUGS (6)
  1. LEVOMEPROMAZINE [Suspect]
     Active Substance: LEVOMEPROMAZINE
     Indication: PSYCHOTIC DISORDER
     Route: 065
  2. APO-CLOZAPINE [Suspect]
     Active Substance: CLOZAPINE
     Indication: PRODUCT USED FOR UNKNOWN INDICATION
     Dosage: 150 MG, QD
     Route: 065
  3. APO-CLOZAPINE [Suspect]
     Active Substance: CLOZAPINE
     Dosage: 125 UNK, UNK
     Route: 065
  4. APO-RISPERIDONE [Suspect]
     Active Substance: RISPERIDONE
     Indication: PSYCHOTIC DISORDER
     Route: 065
  5. APO-OLANZAPINE [Suspect]
     Active Substance: OLANZAPINE
     Indication: PSYCHOTIC DISORDER
     Route: 065
  6. APO-QUETIAPINE [Suspect]
     Active Substance: QUETIAPINE
     Indication: PRODUCT USED FOR UNKNOWN INDICATION
     Dosage: 700 MG, QD
     Route: 065

REACTIONS (9)
  - Fall [Unknown]
  - Resting tremor [Unknown]
  - Cognitive disorder [Unknown]
  - Parkinsonism [Unknown]
  - Cogwheel rigidity [Unknown]
  - Seizure [Unknown]
  - Myoclonus [Unknown]
  - Oculogyric crisis [Unknown]
  - Akathisia [Unknown]
